FAERS Safety Report 20825307 (Version 1)
Quarter: 2022Q2

REPORT INFORMATION
  Report Type: Spontaneous
  Country: US (occurrence: US)
  Receive Date: 20220513
  Receipt Date: 20220513
  Transmission Date: 20220720
  Serious: Yes (Other)
  Sender: FDA-Public Use
  Company Number: US-Glenmark Generics Europe Ltd.-GGEL20110800776

PATIENT

DRUGS (2)
  1. LEVOFLOXACIN [Suspect]
     Active Substance: LEVOFLOXACIN
     Indication: Product used for unknown indication
     Route: 065
  2. GLYBURIDE [Suspect]
     Active Substance: GLYBURIDE
     Indication: Hyperglycaemia
     Route: 065

REACTIONS (2)
  - Brain injury [Unknown]
  - Hypoglycaemia [Unknown]
